FAERS Safety Report 23142325 (Version 1)
Quarter: 2023Q4

REPORT INFORMATION
  Report Type: Spontaneous
  Country: US (occurrence: US)
  Receive Date: 20231103
  Receipt Date: 20231103
  Transmission Date: 20240110
  Serious: No
  Sender: FDA-Public Use
  Company Number: US-SCPHARMACEUTICALS-2023-SCPH-US000134

PATIENT
  Sex: Male
  Weight: 70.975 kg

DRUGS (1)
  1. FUROSCIX [Suspect]
     Active Substance: FUROSEMIDE
     Indication: Cardiac failure
     Dosage: 80 MG, DAILY
     Route: 058
     Dates: start: 20230815

REACTIONS (3)
  - Infusion site erythema [Recovered/Resolved]
  - Infusion site irritation [Recovered/Resolved]
  - Infusion site pruritus [Not Recovered/Not Resolved]
